FAERS Safety Report 15094421 (Version 1)
Quarter: 2018Q2

REPORT INFORMATION
  Report Type: Spontaneous
  Country: IT (occurrence: IT)
  Receive Date: 20180630
  Receipt Date: 20180630
  Transmission Date: 20180711
  Serious: Yes (Hospitalization, Other)
  Sender: FDA-Public Use
  Company Number: IT-AUROBINDO-AUR-APL-2018-033449

PATIENT
  Age: 60 Year
  Sex: Male

DRUGS (2)
  1. SILDENAFIL FILM-COATED TABLET [Suspect]
     Active Substance: SILDENAFIL
     Indication: ERECTILE DYSFUNCTION
     Dosage: 50 MILLIGRAM, DAILY
     Route: 048
  2. METFORMIN [Concomitant]
     Active Substance: METFORMIN HYDROCHLORIDE
     Indication: TYPE 2 DIABETES MELLITUS
     Dosage: UNK
     Route: 065

REACTIONS (2)
  - Optic ischaemic neuropathy [Recovered/Resolved]
  - Macular detachment [Recovered/Resolved]
